FAERS Safety Report 17800489 (Version 1)
Quarter: 2020Q2

REPORT INFORMATION
  Report Type: Spontaneous
  Country: AU (occurrence: AU)
  Receive Date: 20200519
  Receipt Date: 20200519
  Transmission Date: 20200714
  Serious: Yes (Hospitalization, Other)
  Sender: FDA-Public Use
  Company Number: AU-BAXTER-2020BAX009640

PATIENT
  Age: 64 Year
  Sex: Female

DRUGS (4)
  1. DEXAMETHASONE. [Suspect]
     Active Substance: DEXAMETHASONE
     Indication: PREMEDICATION
     Dosage: PRE TREATMENT
     Route: 048
     Dates: start: 20200424, end: 20200424
  2. VIAFLO 5% GLUCOSE IV INFUSION 100 ML [Suspect]
     Active Substance: DEXTROSE
     Indication: MEDICATION DILUTION
     Route: 042
     Dates: start: 20190404, end: 20200424
  3. PACLITAXEL. [Suspect]
     Active Substance: PACLITAXEL
     Indication: BREAST NEOPLASM
     Route: 042
     Dates: start: 20190404, end: 20200424
  4. LORATADINE. [Suspect]
     Active Substance: LORATADINE
     Indication: PREMEDICATION
     Dosage: PRE TREATMENT
     Route: 048
     Dates: start: 20200424, end: 20200424

REACTIONS (5)
  - Vomiting [Recovered/Resolved]
  - Pruritus [Recovered/Resolved]
  - Flushing [Recovered/Resolved]
  - Burning sensation [Recovered/Resolved]
  - Unresponsive to stimuli [Recovered/Resolved]

NARRATIVE: CASE EVENT DATE: 20200424
